FAERS Safety Report 6357355-0 (Version None)
Quarter: 2009Q3

REPORT INFORMATION
  Report Type: 
  Country: None (occurrence: None)
  Receive Date: 20090916
  Receipt Date: 20090904
  Transmission Date: 20100115
  Serious: Yes (Other)
  Sender: FDA-Public Use
  Company Number: US-BIOGENIDEC-2009BI028599

PATIENT
  Age: 43 Year
  Sex: Female

DRUGS (3)
  1. TYSABRI [Suspect]
     Indication: MULTIPLE SCLEROSIS
     Route: 042
     Dates: start: 20070924, end: 20090720
  2. CELEXA [Concomitant]
     Indication: DEPRESSION
     Route: 048
  3. TOPIRAMATE [Concomitant]
     Indication: MIGRAINE

REACTIONS (1)
  - RECTAL ABSCESS [None]
